FAERS Safety Report 17318219 (Version 1)
Quarter: 2020Q1

REPORT INFORMATION
  Report Type: Spontaneous
  Country: US (occurrence: US)
  Receive Date: 20200124
  Receipt Date: 20200124
  Transmission Date: 20200409
  Serious: Yes (Other)
  Sender: FDA-Public Use
  Company Number: US-MYLANLABS-2020M1006423

PATIENT
  Sex: Male

DRUGS (2)
  1. PREDNISONE. [Suspect]
     Active Substance: PREDNISONE
     Indication: PRODUCT USED FOR UNKNOWN INDICATION
     Dosage: 4 DOSAGE FORM, QD (4 TABLETS ONCE A DAY)
     Route: 048
     Dates: start: 20190515
  2. ABIRATERONE ACETATE TABLETS USP, 250 MG [Suspect]
     Active Substance: ABIRATERONE ACETATE
     Indication: PROSTATE CANCER
     Dosage: 800 MILLIGRAM, QD
     Route: 048
     Dates: start: 20190515, end: 201910

REACTIONS (6)
  - Fatigue [Recovered/Resolved]
  - Loss of personal independence in daily activities [Recovered/Resolved]
  - Hallucination [Recovered/Resolved]
  - Blood pressure increased [Recovered/Resolved]
  - Illusion [Recovered/Resolved]
  - Confusional state [Recovered/Resolved]
